FAERS Safety Report 5821231-X (Version None)
Quarter: 2008Q3

REPORT INFORMATION
  Report Type: 
  Country: None (occurrence: None)
  Receive Date: 20080723
  Receipt Date: 20080707
  Transmission Date: 20090109
  Serious: Yes (Hospitalization)
  Sender: FDA-Public Use
  Company Number: APP200800691

PATIENT
  Age: 51 Year
  Sex: Female

DRUGS (3)
  1. HEPARIN SODIUM INJECTION [Suspect]
     Indication: VASCULAR OPERATION
     Dosage: VARYING DOSES, INTRAVENOUS BOLUS
     Route: 040
     Dates: start: 20080624, end: 20080624
  2. HEPARIN SODIUM INJECTION [Suspect]
     Indication: VASCULAR OPERATION
     Dosage: VARYING DOSES, INTRAVENOUS BOLUS
     Route: 040
     Dates: start: 20080702, end: 20080707
  3. HEPARIN [Suspect]
     Indication: VASCULAR OPERATION
     Dosage: 100 U/ML IN 250 ML BAG, INTRAVENOUS DRIP
     Route: 041
     Dates: start: 20080702, end: 20080707

REACTIONS (1)
  - HEPARIN-INDUCED THROMBOCYTOPENIA [None]
